FAERS Safety Report 17017051 (Version 3)
Quarter: 2020Q2

REPORT INFORMATION
  Report Type: Spontaneous
  Country: US (occurrence: US)
  Receive Date: 20191111
  Receipt Date: 20200512
  Transmission Date: 20200713
  Serious: Yes (Other)
  Sender: FDA-Public Use
  Company Number: US-SA-2019SA307653

PATIENT
  Age: 46 Year
  Sex: Male

DRUGS (1)
  1. TOUJEO [Suspect]
     Active Substance: INSULIN GLARGINE
     Indication: TYPE 1 DIABETES MELLITUS
     Dosage: 34 IU, QD
     Route: 065
     Dates: start: 201607

REACTIONS (4)
  - Seizure [Unknown]
  - Blood glucose decreased [Unknown]
  - Device delivery system issue [Unknown]
  - Coma [Unknown]

NARRATIVE: CASE EVENT DATE: 20190101
